FAERS Safety Report 8901584 (Version 1)
Quarter: 2012Q4

REPORT INFORMATION
  Report Type: Spontaneous
  Country: US (occurrence: None)
  Receive Date: 20121108
  Receipt Date: 20121108
  Transmission Date: 20130627
  Serious: No
  Sender: FDA-Public Use
  Company Number: None

PATIENT
  Age: 69 Year
  Sex: Female

DRUGS (7)
  1. REVLIMID 10MG CELGENE [Suspect]
     Indication: MYELODYSPLASTIC SYNDROME
     Route: 048
     Dates: start: 20121022, end: 20121106
  2. REVLIMID [Concomitant]
  3. LISINOPRIL [Concomitant]
  4. METOPROLOL [Concomitant]
  5. PRAVASTATIN [Concomitant]
  6. LEVOTHYROXINE [Concomitant]
  7. MVI WITH MINERALS [Concomitant]

REACTIONS (1)
  - Thrombocytopenia [None]
